FAERS Safety Report 7250058-X (Version None)
Quarter: 2011Q1

REPORT INFORMATION
  Report Type: 
  Country: None (occurrence: None)
  Receive Date: 20110128
  Receipt Date: 20110117
  Transmission Date: 20110831
  Serious: Yes (Disabling)
  Sender: FDA-Public Use
  Company Number: SE-BAYER-2010-005793

PATIENT
  Sex: Female

DRUGS (3)
  1. BETAFERON [Suspect]
     Indication: MULTIPLE SCLEROSIS
     Route: 058
  2. TRYPTIZOL [Concomitant]
     Indication: NEURALGIA
  3. LYRICA [Concomitant]
     Indication: PAIN

REACTIONS (2)
  - PAIN IN EXTREMITY [None]
  - COGNITIVE DISORDER [None]
